FAERS Safety Report 6153799-0 (Version None)
Quarter: 2009Q2

REPORT INFORMATION
  Report Type: 
  Country: None (occurrence: None)
  Receive Date: 20090414
  Receipt Date: 20090403
  Transmission Date: 20091009
  Serious: Yes (Other)
  Sender: FDA-Public Use
  Company Number: ES-RANBAXY-2009RR-23206

PATIENT
  Age: 73 Year
  Sex: Female

DRUGS (5)
  1. FLUOXETINE [Suspect]
     Indication: DEPRESSION
     Dosage: 20 MG, QD
  2. FENTANYL [Suspect]
     Indication: ANALGESIA
     Dosage: 25 UG, UNK
     Route: 062
  3. TRAMADOL [Suspect]
     Indication: ANALGESIA
     Dosage: 50 MG, TID
  4. PARACETAMOL [Suspect]
     Indication: ANALGESIA
     Dosage: 1 G, TID
  5. LINEZOLIDE [Suspect]
     Dosage: 600 MG, BID

REACTIONS (2)
  - DRUG INTERACTION [None]
  - SEROTONIN SYNDROME [None]
